FAERS Safety Report 11194207 (Version 1)
Quarter: 2015Q2

REPORT INFORMATION
  Report Type: Spontaneous
  Country: BR (occurrence: BR)
  Receive Date: 20150616
  Receipt Date: 20150616
  Transmission Date: 20150821
  Serious: Yes (Hospitalization)
  Sender: FDA-Public Use
  Company Number: BR-PFIZER INC-2015196630

PATIENT
  Age: 78 Year
  Sex: Male
  Weight: 62 kg

DRUGS (3)
  1. ZOLOFT [Suspect]
     Active Substance: SERTRALINE HYDROCHLORIDE
     Indication: DEPRESSION
     Dosage: 25 MG, UNK
     Route: 048
     Dates: start: 2013
  2. LEXOTAN [Concomitant]
     Active Substance: BROMAZEPAM
     Indication: LUNG DISORDER
  3. SPIRIVA RESPIMAT [Concomitant]
     Active Substance: TIOTROPIUM BROMIDE
     Indication: LUNG DISORDER
     Dosage: UNK
     Dates: start: 2012

REACTIONS (3)
  - Emphysema [Unknown]
  - Condition aggravated [Unknown]
  - Prostatomegaly [Not Recovered/Not Resolved]

NARRATIVE: CASE EVENT DATE: 201412
